FAERS Safety Report 24929402 (Version 5)
Quarter: 2025Q1

REPORT INFORMATION
  Report Type: Report from Study
  Country: US (occurrence: US)
  Receive Date: 20250205
  Receipt Date: 20250304
  Transmission Date: 20250408
  Serious: No
  Sender: ABBVIE
  Company Number: US-ABBVIE-6111473

PATIENT
  Age: 87 Year
  Sex: Male
  Weight: 77.11 kg

DRUGS (2)
  1. HUMIRA [Suspect]
     Active Substance: ADALIMUMAB
     Indication: Psoriasis
     Dosage: HUMIRA 40MG/0.4ML CITRATE FREE?UNKNOWN?FORM STRENGTH: 40 MILLIGRAM?STOP DATE: END OF DEC 2024 OR ...
     Route: 058
     Dates: start: 2024
  2. HUMIRA [Suspect]
     Active Substance: ADALIMUMAB
     Indication: Eczema

REACTIONS (6)
  - Skin disorder [Not Recovered/Not Resolved]
  - Psoriasis [Not Recovered/Not Resolved]
  - Depressed mood [Recovered/Resolved]
  - Fatigue [Unknown]
  - Frustration tolerance decreased [Not Recovered/Not Resolved]
  - Feeling of despair [Recovered/Resolved]

NARRATIVE: CASE EVENT DATE: 20250101
